FAERS Safety Report 7195490-8 (Version None)
Quarter: 2010Q4

REPORT INFORMATION
  Report Type: 
  Country: None (occurrence: None)
  Receive Date: 20101223
  Receipt Date: 20101004
  Transmission Date: 20110411
  Serious: Yes (Hospitalization, Other)
  Sender: FDA-Public Use
  Company Number: US-AMGEN-KDL441065

PATIENT

DRUGS (1)
  1. ENBREL [Suspect]
     Indication: RHEUMATOID ARTHRITIS
     Dosage: 50 MG, QWK
     Route: 058
     Dates: start: 20000501, end: 20100721

REACTIONS (5)
  - ANGIOEDEMA [None]
  - ARTHRALGIA [None]
  - BACTERAEMIA [None]
  - ORAL CANDIDIASIS [None]
  - PYELONEPHRITIS [None]
